FAERS Safety Report 8584211-X (Version None)
Quarter: 2012Q3

REPORT INFORMATION
  Report Type: 
  Country: None (occurrence: None)
  Receive Date: 20120810
  Receipt Date: 20120802
  Transmission Date: 20120928
  Serious: Yes (Hospitalization)
  Sender: FDA-Public Use
  Company Number: US-BIOGENIDEC-2012BI027045

PATIENT
  Sex: Female

DRUGS (4)
  1. KEPPRA [Concomitant]
     Indication: CONVULSION
  2. TYSABRI [Suspect]
     Indication: MULTIPLE SCLEROSIS
     Route: 042
     Dates: start: 20070315, end: 20120222
  3. DEPAKOTE [Concomitant]
     Indication: COMPLEX PARTIAL SEIZURES
  4. HUMALOG [Concomitant]
     Indication: TYPE 1 DIABETES MELLITUS

REACTIONS (1)
  - DEMENTIA [None]
